FAERS Safety Report 23567232 (Version 1)
Quarter: 2024Q1

REPORT INFORMATION
  Report Type: Spontaneous
  Country: CN (occurrence: CN)
  Receive Date: 20240226
  Receipt Date: 20240226
  Transmission Date: 20240410
  Serious: Yes (Other)
  Sender: FDA-Public Use
  Company Number: CN-PFIZER INC-PV202400026092

PATIENT
  Age: 28 Year
  Sex: Male
  Weight: 68 kg

DRUGS (1)
  1. AZITHROMYCIN [Suspect]
     Active Substance: AZITHROMYCIN
     Indication: Upper respiratory tract infection
     Dosage: 0.5 G, 1X/DAY
     Route: 048
     Dates: start: 20240219, end: 20240219

REACTIONS (3)
  - Abdominal pain [Recovering/Resolving]
  - Hyperhidrosis [Recovering/Resolving]
  - Balance disorder [Recovering/Resolving]

NARRATIVE: CASE EVENT DATE: 20240219
